FAERS Safety Report 5945498-2 (Version None)
Quarter: 2008Q4

REPORT INFORMATION
  Report Type: 
  Country: None (occurrence: None)
  Receive Date: 20081107
  Receipt Date: 20081027
  Transmission Date: 20090506
  Serious: Yes (Other)
  Sender: FDA-Public Use
  Company Number: JP-PFIZER INC-2008090729

PATIENT
  Age: 73 Year
  Sex: Male

DRUGS (5)
  1. ZOLOFT [Suspect]
     Route: 048
  2. AMOXAPINE [Concomitant]
  3. MEDIPEACE [Concomitant]
  4. LANSOPRAZOLE [Concomitant]
  5. ROHYPNOL [Concomitant]

REACTIONS (2)
  - CARBOHYDRATE ANTIGEN 19-9 INCREASED [None]
  - TUMOUR MARKER INCREASED [None]
